FAERS Safety Report 10510443 (Version 8)
Quarter: 2018Q1

REPORT INFORMATION
  Report Type: Report from Study
  Country: SK (occurrence: SK)
  Receive Date: 20141010
  Receipt Date: 20180315
  Transmission Date: 20180508
  Serious: Yes (Hospitalization)
  Sender: FDA-Public Use
  Company Number: SK-AMGEN-SVKCT2014077207

PATIENT
  Age: 74 Year
  Sex: Female
  Weight: 79 kg

DRUGS (11)
  1. DENOSUMAB [Suspect]
     Active Substance: DENOSUMAB
     Indication: BREAST CANCER
     Dosage: UNK
     Route: 058
     Dates: start: 20120321
  2. DENOSUMAB [Suspect]
     Active Substance: DENOSUMAB
     Dosage: UNK
     Route: 058
     Dates: start: 20150909
  3. GLICLADA [Concomitant]
     Active Substance: GLICLAZIDE
     Dosage: 30 MG, UNK
     Route: 048
     Dates: start: 200905
  4. NOLIPREL FORTE [Concomitant]
     Dosage: 5 TO 10 MG, UNK
     Route: 048
     Dates: start: 200810
  5. AMLOPIN [Concomitant]
     Active Substance: AMLODIPINE BESYLATE
     Dosage: 5 MG, UNK
     Route: 048
     Dates: start: 200810
  6. KOMBI KALZ [Concomitant]
     Dosage: 1000 MG CALCIUM CARBONATE AND 880 MG IU COLECALCIFEROL, UNK
     Route: 048
     Dates: start: 20120321
  7. GLUCOPHAGE [Concomitant]
     Active Substance: METFORMIN HYDROCHLORIDE
     Dosage: 100 MG, UNK
     Route: 048
     Dates: start: 201008
  8. ETRUZIL [Concomitant]
     Active Substance: LETROZOLE
     Dosage: 2.5 MG, QD (IN MORNING)
  9. ZINNAT [Concomitant]
     Active Substance: CEFUROXIME AXETIL
     Dosage: 500 MG, UNK
     Route: 048
     Dates: start: 20140821, end: 20140924
  10. THIOGAMMA [Concomitant]
     Active Substance: THIOCTIC ACID
     Dosage: 600 MG, UNK
     Route: 048
     Dates: start: 201008
  11. CONCOR COR [Concomitant]
     Active Substance: BISOPROLOL FUMARATE
     Dosage: 5 MG, UNK
     Route: 048
     Dates: start: 200810

REACTIONS (1)
  - Osteitis [Recovered/Resolved]

NARRATIVE: CASE EVENT DATE: 20140925
